FAERS Safety Report 11277277 (Version 1)
Quarter: 2015Q3

REPORT INFORMATION
  Report Type: Spontaneous
  Country: IE (occurrence: IE)
  Receive Date: 20150716
  Receipt Date: 20150716
  Transmission Date: 20151125
  Serious: Yes (Hospitalization)
  Sender: FDA-Public Use
  Company Number: IE-BAXTER-2013BAX001306

PATIENT
  Age: 55 Year
  Sex: Female

DRUGS (14)
  1. SYNTHAMIN [Suspect]
     Active Substance: AMINO ACIDS
     Indication: SHORT-BOWEL SYNDROME
     Route: 042
  2. POTASSIUM CHLORIDE. [Suspect]
     Active Substance: POTASSIUM CHLORIDE
     Indication: SHORT-BOWEL SYNDROME
     Route: 042
  3. CLINOLEIC 20% (BAG) [Suspect]
     Active Substance: OLIVE OIL\SOYBEAN OIL
     Indication: SHORT-BOWEL SYNDROME
     Route: 042
  4. WATER FOR INJECTION [Suspect]
     Active Substance: WATER
     Indication: SHORT-BOWEL SYNDROME
     Route: 042
  5. GLUCOSE INTRAVENOUS INFUSION BP 40% W/V [Suspect]
     Active Substance: DEXTROSE
     Indication: SHORT-BOWEL SYNDROME
     Route: 042
  6. DECAN CONCENTRATE FOR SOLUTION FOR INFUSION [Suspect]
     Active Substance: MINERALS
     Indication: SHORT-BOWEL SYNDROME
     Route: 042
  7. MAGNESIUM SULFATE. [Suspect]
     Active Substance: MAGNESIUM SULFATE
     Indication: SHORT-BOWEL SYNDROME
     Route: 042
  8. COMPOUND SODIUM LACTATE INTRAVENOUS INFUSION BP (HARTMANN^S SOLUTION) [Suspect]
     Active Substance: CALCIUM CHLORIDE\POTASSIUM CHLORIDE\SODIUM CHLORIDE\SODIUM LACTATE
     Indication: SHORT-BOWEL SYNDROME
     Route: 042
  9. CERNEVIT [Suspect]
     Active Substance: VITAMINS
     Indication: SHORT-BOWEL SYNDROME
     Route: 042
  10. SODIUM GLYCEROPHOSPHATE [Suspect]
     Active Substance: SODIUM GLYCEROPHOSPHATE
     Indication: SHORT-BOWEL SYNDROME
     Route: 042
  11. CALCIUM CHLORIDE /00203801/ [Suspect]
     Active Substance: CALCIUM CHLORIDE
     Indication: SHORT-BOWEL SYNDROME
     Route: 042
  12. SYNTHAMIN [Suspect]
     Active Substance: AMINO ACIDS
     Indication: SHORT-BOWEL SYNDROME
     Route: 042
  13. SODIUM CHLORIDE. [Suspect]
     Active Substance: SODIUM CHLORIDE
     Indication: SHORT-BOWEL SYNDROME
     Route: 042
  14. SODIUM CHLORIDE INTRAVENOUS INFUSION BP 0.9% W/V [Suspect]
     Active Substance: SODIUM CHLORIDE
     Indication: SHORT-BOWEL SYNDROME
     Route: 042

REACTIONS (1)
  - Device related infection [Unknown]

NARRATIVE: CASE EVENT DATE: 20130107
